FAERS Safety Report 4914201-7 (Version None)
Quarter: 2006Q1

REPORT INFORMATION
  Report Type: 
  Country: None (occurrence: None)
  Receive Date: 20060113
  Receipt Date: 20051104
  Transmission Date: 20060701
  Serious: No
  Sender: FDA-Public Use
  Company Number: 2005SP003851

PATIENT
  Age: 63 Year
  Sex: Female

DRUGS (11)
  1. LUNESTA [Suspect]
     Indication: INSOMNIA
     Dosage: 2 MG; HS; ORAL
     Route: 048
     Dates: start: 20051001
  2. MORPHINE [Concomitant]
  3. PREDNISONE [Concomitant]
  4. HUMALOG [Concomitant]
  5. HUMALIN [Concomitant]
  6. ACYCLOVIR [Concomitant]
  7. CARDIZEM [Concomitant]
  8. NEXIUM [Concomitant]
  9. STOOL SOFTNER [Concomitant]
  10. LESCOL [Concomitant]
  11. ZOLOFT [Concomitant]

REACTIONS (3)
  - ABNORMAL FAECES [None]
  - CONSTIPATION [None]
  - DYSGEUSIA [None]
